FAERS Safety Report 7778680-2 (Version None)
Quarter: 2011Q3

REPORT INFORMATION
  Report Type: 
  Country: None (occurrence: None)
  Receive Date: 20110926
  Receipt Date: 20110916
  Transmission Date: 20111222
  Serious: Yes (Hospitalization)
  Sender: FDA-Public Use
  Company Number: JP-B.I. PHARMACEUTICALS,INC./RIDGEFIELD-2011-DE-04455GD

PATIENT
  Sex: Male
  Weight: 65 kg

DRUGS (4)
  1. BI-SIFROL TABLETS [Suspect]
     Indication: PARKINSON'S DISEASE
     Dosage: 2.5 MG
     Route: 048
     Dates: start: 20070509, end: 20110815
  2. FP / SELEGILINE HYDROCHLORIDE [Concomitant]
     Indication: PARKINSON'S DISEASE
     Dosage: 2.5 MG
     Route: 048
     Dates: start: 20070131, end: 20110821
  3. COMTAN [Concomitant]
     Indication: PARKINSON'S DISEASE
     Dosage: 300 MG
     Route: 048
     Dates: start: 20080409
  4. L-DOPA [Concomitant]
     Indication: PARKINSON'S DISEASE
     Dosage: 300 MG
     Route: 048
     Dates: start: 20060926

REACTIONS (3)
  - NEUROLEPTIC MALIGNANT SYNDROME [None]
  - HYPONATRAEMIA [None]
  - FALL [None]
